FAERS Safety Report 7546724-9 (Version None)
Quarter: 2011Q2

REPORT INFORMATION
  Report Type: 
  Country: None (occurrence: None)
  Receive Date: 20110614
  Receipt Date: 20110601
  Transmission Date: 20111010
  Serious: Yes (Death, Hospitalization)
  Sender: FDA-Public Use
  Company Number: A0901022A

PATIENT
  Age: 35 Year
  Sex: Female
  Weight: 104.5 kg

DRUGS (6)
  1. CLONAZEPAM [Concomitant]
  2. LORCET-HD [Concomitant]
  3. LEXAPRO [Concomitant]
  4. DILAUDID [Concomitant]
  5. LAMICTAL [Suspect]
     Dosage: 200MG PER DAY
     Route: 048
     Dates: start: 20080117, end: 20080212
  6. VALTREX [Concomitant]

REACTIONS (4)
  - STEVENS-JOHNSON SYNDROME [None]
  - BRAIN HERNIATION [None]
  - BRAIN OEDEMA [None]
  - HAEMORRHAGE [None]
